FAERS Safety Report 7202210-7 (Version None)
Quarter: 2010Q4

REPORT INFORMATION
  Report Type: 
  Country: None (occurrence: None)
  Receive Date: 20101229
  Receipt Date: 20101218
  Transmission Date: 20110411
  Serious: Yes (Other)
  Sender: FDA-Public Use
  Company Number: AU-PFIZER INC-2010178737

PATIENT
  Age: 68 Year
  Sex: Female

DRUGS (4)
  1. LYRICA [Suspect]
     Dosage: 75 MG, 2X/DAY
     Dates: start: 20100601
  2. VALPROATE SODIUM [Concomitant]
     Dosage: 200 MG, 2X/DAY
     Dates: start: 19840101
  3. TOPAMAX [Concomitant]
     Dosage: 50 MG, 2X/DAY
  4. MICARDIS [Concomitant]
     Dosage: 40 MG, 1X/DAY

REACTIONS (3)
  - DRUG EFFECT DECREASED [None]
  - ELECTROENCEPHALOGRAM ABNORMAL [None]
  - SLEEP PHASE RHYTHM DISTURBANCE [None]
